FAERS Safety Report 6995278-4 (Version None)
Quarter: 2010Q3

REPORT INFORMATION
  Report Type: 
  Country: None (occurrence: None)
  Receive Date: 20100915
  Receipt Date: 20100827
  Transmission Date: 20110219
  Serious: Yes (Hospitalization)
  Sender: FDA-Public Use
  Company Number: 2009AC000287

PATIENT
  Age: 65 Year
  Sex: Female

DRUGS (47)
  1. DIGOXIN [Suspect]
     Dosage: PO
     Route: 048
     Dates: start: 20071105, end: 20071101
  2. DIGOXIN [Suspect]
     Indication: PRODUCT USED FOR UNKNOWN INDICATION
     Dosage: 0.125 MG;QD;PO
     Route: 048
     Dates: start: 20030701, end: 20071101
  3. CELEBREX [Concomitant]
  4. LISINOPRIL [Concomitant]
  5. DARVOCET [Concomitant]
  6. LASIX [Concomitant]
  7. PRAVASTATIN [Concomitant]
  8. AMLODIPINE [Concomitant]
  9. ASPIRIN [Concomitant]
  10. HUMULIN R [Concomitant]
  11. SEPTRA [Concomitant]
  12. UNIVASC [Concomitant]
  13. ACCUPRIL [Concomitant]
  14. MECLIZINE [Concomitant]
  15. POTASSIUM CHLORIDE [Concomitant]
  16. TARKA [Concomitant]
  17. CEPHALEXIN [Concomitant]
  18. HYDROCODONE BITARTRATE AND ACETAMINOPHEN [Concomitant]
  19. ERYTHROMYCIN [Concomitant]
  20. ZYMAR [Concomitant]
  21. ACETAMINOPHEN AND CODEINE PHOSPHATE #3 [Concomitant]
  22. UNIRETIC [Concomitant]
  23. CELEBREX [Concomitant]
  24. SULAR [Concomitant]
  25. LISINOPRIL AND HYDROCHLOROTHIAZIDE [Concomitant]
  26. OMEPRAZOLE [Concomitant]
  27. COLCHINE [Concomitant]
  28. LASIX [Concomitant]
  29. PRAVASTATIN [Concomitant]
  30. MELOXICAM [Concomitant]
  31. AMIODARONE [Concomitant]
  32. NORVASC [Concomitant]
  33. PROTONIX [Concomitant]
  34. HYDROCHLOROTHIAZIDE [Concomitant]
  35. NOVOLIN 70/30 [Concomitant]
  36. ALEVE (CAPLET) [Concomitant]
  37. LOPRESSOR [Concomitant]
  38. NOLVADEX [Concomitant]
  39. LOTENSIN [Concomitant]
  40. ELAVIL [Concomitant]
  41. GUAIFENESIN [Concomitant]
  42. COTRIM [Concomitant]
  43. AMITRIPTYLINE HCL [Concomitant]
  44. CLONIDINE [Concomitant]
  45. LORATADINE [Concomitant]
  46. TRAMADOL HCL [Concomitant]
  47. SPIRONOLACTONE [Concomitant]

REACTIONS (17)
  - ASTHENIA [None]
  - BLOOD CREATININE INCREASED [None]
  - BLOOD UREA INCREASED [None]
  - BRADYCARDIA [None]
  - CARDIAC STRESS TEST ABNORMAL [None]
  - CHEST PAIN [None]
  - DIABETIC NEUROPATHY [None]
  - DYSPNOEA [None]
  - ECONOMIC PROBLEM [None]
  - FATIGUE [None]
  - HAEMOGLOBIN DECREASED [None]
  - INJURY [None]
  - ISCHAEMIA [None]
  - NODAL ARRHYTHMIA [None]
  - PAIN IN EXTREMITY [None]
  - URINARY TRACT INFECTION [None]
  - VENTRICULAR EXTRASYSTOLES [None]
